FAERS Safety Report 8381972-X (Version None)
Quarter: 2012Q1

REPORT INFORMATION
  Report Type: 
  Country: None (occurrence: None)
  Receive Date: 20120323
  Receipt Date: 20110816
  Transmission Date: 20120608
  Serious: Yes (Other)
  Sender: FDA-Public Use
  Company Number: 163-21880-11051882

PATIENT
  Age: 64 Year
  Sex: Female

DRUGS (8)
  1. BACTRIM [Concomitant]
  2. FOLIC ACID [Concomitant]
  3. CENTRUM (CENTRUM) [Concomitant]
  4. REVLIMID [Suspect]
     Indication: MULTIPLE MYELOMA
     Dosage: 10 MG, DAILY FOR 21 DAYS ON THEN 7 DAYS OFF, PO ; 5 MG, QD X 21 DAYS, PO
     Route: 048
     Dates: start: 20110318, end: 20110503
  5. REVLIMID [Suspect]
     Indication: MULTIPLE MYELOMA
     Dosage: 10 MG, DAILY FOR 21 DAYS ON THEN 7 DAYS OFF, PO ; 5 MG, QD X 21 DAYS, PO
     Route: 048
     Dates: start: 20110514
  6. ACYCLOVIR [Concomitant]
  7. PROZAC [Concomitant]
  8. MULTIVITAMIN [Concomitant]

REACTIONS (2)
  - RASH PRURITIC [None]
  - RASH GENERALISED [None]
